FAERS Safety Report 10185539 (Version 1)
Quarter: 2014Q2

REPORT INFORMATION
  Report Type: Spontaneous
  Country: US (occurrence: US)
  Receive Date: 20140521
  Receipt Date: 20140521
  Transmission Date: 20141212
  Serious: No
  Sender: FDA-Public Use
  Company Number: US-PFIZER INC-2014134628

PATIENT
  Age: 68 Year
  Sex: Male

DRUGS (8)
  1. ATORVASTATIN CALCIUM [Suspect]
     Indication: BLOOD CHOLESTEROL ABNORMAL
     Dosage: UNK
  2. ASPIRIN [Concomitant]
     Indication: CARDIAC DISORDER
     Dosage: 325 MG, DAILY
  3. NIACIN [Concomitant]
     Dosage: 500 MG, 2X/DAY
  4. FISH OIL [Concomitant]
     Dosage: UNK
  5. LUTEIN [Concomitant]
     Dosage: UNK
  6. LISINOPRIL [Concomitant]
     Dosage: 5 MG, DAILY
  7. FENOFIBRATE [Concomitant]
     Dosage: 134 MG, DAILY
  8. CARVEDILOL [Concomitant]
     Dosage: 6.25 MG, 2X/DAY

REACTIONS (2)
  - Arthralgia [Not Recovered/Not Resolved]
  - Myalgia [Not Recovered/Not Resolved]
